FAERS Safety Report 8249447-6 (Version None)
Quarter: 2012Q1

REPORT INFORMATION
  Report Type: 
  Country: None (occurrence: None)
  Receive Date: 20120328
  Receipt Date: 20120316
  Transmission Date: 20120608
  Serious: Yes (Death, Other)
  Sender: FDA-Public Use
  Company Number: UCM201203-000034

PATIENT
  Age: 20 Year
  Sex: Female

DRUGS (2)
  1. BISOPROLOL FUMARATE [Suspect]
     Indication: ACNE
  2. MINOCYCLINE HCL [Suspect]

REACTIONS (1)
  - THYROID DISORDER [None]
